FAERS Safety Report 14554040 (Version 1)
Quarter: 2018Q1

REPORT INFORMATION
  Report Type: Spontaneous
  Country: US (occurrence: US)
  Receive Date: 20180220
  Receipt Date: 20180220
  Transmission Date: 20180509
  Serious: No
  Sender: FDA-Public Use
  Company Number: US-PFIZER INC-2018070582

PATIENT
  Age: 50 Year
  Sex: Female

DRUGS (1)
  1. BENZONATATE. [Suspect]
     Active Substance: BENZONATATE
     Dosage: UNK

REACTIONS (4)
  - Nasal discomfort [Unknown]
  - Sinus disorder [Unknown]
  - Drug hypersensitivity [Unknown]
  - Rhinorrhoea [Unknown]
